FAERS Safety Report 9557882 (Version 1)
Quarter: 2013Q3

REPORT INFORMATION
  Report Type: Spontaneous
  Country: US (occurrence: US)
  Receive Date: 20130926
  Receipt Date: 20130926
  Transmission Date: 20140515
  Serious: Yes (Disabling)
  Sender: FDA-Public Use
  Company Number: US-BAYER-2013-115508

PATIENT
  Sex: Female

DRUGS (2)
  1. AVELOX [Suspect]
  2. CIPRO [Suspect]
     Dosage: UNK

REACTIONS (12)
  - Quality of life decreased [None]
  - Dysbacteriosis [None]
  - Pain [None]
  - Musculoskeletal stiffness [None]
  - Injury [None]
  - Tendon injury [None]
  - Joint injury [None]
  - Muscle injury [None]
  - Injury [None]
  - Nervous system disorder [None]
  - Autonomic nervous system imbalance [None]
  - Eye disorder [None]
